FAERS Safety Report 23774456 (Version 1)
Quarter: 2024Q2

REPORT INFORMATION
  Report Type: Spontaneous
  Country: US (occurrence: US)
  Receive Date: 20240423
  Receipt Date: 20240423
  Transmission Date: 20240716
  Serious: Yes (Other)
  Sender: FDA-Public Use
  Company Number: US-RADIUS HEALTH INC.-2023US006888

PATIENT
  Age: 72 Year
  Sex: Female

DRUGS (2)
  1. BINOSTO [Suspect]
     Active Substance: ALENDRONATE SODIUM
     Indication: Osteoporosis
     Dosage: UNK, 1 WEEK
     Route: 065
     Dates: start: 1990, end: 2013
  2. RALOXIFENE [Concomitant]
     Active Substance: RALOXIFENE
     Indication: Product used for unknown indication
     Dosage: UNK

REACTIONS (1)
  - Atypical femur fracture [Unknown]

NARRATIVE: CASE EVENT DATE: 20150601
